FAERS Safety Report 7227552-0 (Version None)
Quarter: 2011Q1

REPORT INFORMATION
  Report Type: 
  Country: None (occurrence: None)
  Receive Date: 20110105
  Receipt Date: 20101224
  Transmission Date: 20110831
  Serious: Yes (Other)
  Sender: FDA-Public Use
  Company Number: 024565

PATIENT
  Age: 19 Year
  Sex: Female

DRUGS (2)
  1. TRINOVUM (TRINOVUM) (NOT SPECIFIED) [Suspect]
     Indication: CONTRACEPTION
     Dosage: (ORAL)
     Route: 048
  2. LEVETIRACETAM [Suspect]
     Indication: EPILEPSY
     Dosage: (250 MG BID)

REACTIONS (2)
  - PREGNANCY ON ORAL CONTRACEPTIVE [None]
  - DRUG EXPOSURE DURING PREGNANCY [None]
